FAERS Safety Report 4727562-9 (Version None)
Quarter: 2005Q3

REPORT INFORMATION
  Report Type: 
  Country: None (occurrence: None)
  Receive Date: 20050728
  Receipt Date: 20050719
  Transmission Date: 20060218
  Serious: Yes (Life-Threatening, Hospitalization)
  Sender: FDA-Public Use
  Company Number: US-NOVOPROD-245662

PATIENT
  Age: 46 Year
  Sex: Female

DRUGS (1)
  1. NOVOLOG [Suspect]
     Indication: DIABETES MELLITUS
     Dosage: DOSE, ROUTE, FREQUENCY UNKNOWN

REACTIONS (1)
  - MYOCARDIAL INFARCTION [None]
